FAERS Safety Report 25001219 (Version 1)
Quarter: 2025Q1

REPORT INFORMATION
  Report Type: Report from Study
  Country: US (occurrence: US)
  Receive Date: 20250223
  Receipt Date: 20250223
  Transmission Date: 20250409
  Serious: Yes (Hospitalization, Other)
  Sender: CSL BEHRING
  Company Number: US-BEH-2025196385

PATIENT
  Age: 69 Year
  Sex: Male
  Weight: 90.3 kg

DRUGS (1)
  1. HIZENTRA [Suspect]
     Active Substance: HUMAN IMMUNOGLOBULIN G
     Route: 065

REACTIONS (6)
  - Knee operation [Unknown]
  - Deep vein thrombosis [Unknown]
  - Thrombosis [Unknown]
  - Nodule [Unknown]
  - Skin warm [Unknown]
  - Mass [Unknown]
